FAERS Safety Report 6101051-1 (Version None)
Quarter: 2009Q1

REPORT INFORMATION
  Report Type: 
  Country: None (occurrence: None)
  Receive Date: 20090304
  Receipt Date: 20090223
  Transmission Date: 20090719
  Serious: Yes (Hospitalization)
  Sender: FDA-Public Use
  Company Number: JP-AMGEN-US336516

PATIENT
  Age: 76 Year
  Sex: Female

DRUGS (5)
  1. ENBREL [Suspect]
     Indication: DRUG USE FOR UNKNOWN INDICATION
     Route: 058
     Dates: start: 20081115, end: 20090210
  2. MUCOSTA [Concomitant]
     Dosage: UNSPECIFIED
     Route: 048
  3. VOLTAREN [Concomitant]
     Dosage: UNSPECIFIED
     Route: 048
  4. AZULFIDINE EN-TABS [Concomitant]
     Route: 048
  5. ZANTAC [Concomitant]
     Route: 048

REACTIONS (4)
  - CONDITION AGGRAVATED [None]
  - INFECTION [None]
  - PNEUMONIA [None]
  - PULMONARY FIBROSIS [None]
